FAERS Safety Report 4354570-2 (Version None)
Quarter: 2004Q2

REPORT INFORMATION
  Report Type: 
  Country: None (occurrence: None)
  Receive Date: 20040503
  Receipt Date: 20040421
  Transmission Date: 20050107
  Serious: Yes (Life-Threatening, Hospitalization, Disabling, Other)
  Sender: FDA-Public Use
  Company Number: 2004-04-0933

PATIENT
  Age: 45 Year
  Sex: Male
  Weight: 66.2252 kg

DRUGS (33)
  1. TEMODAR [Suspect]
     Indication: GLIOBLASTOMA
     Dosage: SEE IMAGE
     Route: 048
     Dates: start: 20020808, end: 20020812
  2. TEMODAR [Suspect]
     Indication: GLIOBLASTOMA
     Dosage: SEE IMAGE
     Route: 048
     Dates: start: 20020827, end: 20020831
  3. TEMODAR [Suspect]
     Indication: GLIOBLASTOMA
     Dosage: SEE IMAGE
     Route: 048
     Dates: start: 20020917, end: 20020921
  4. TEMODAR [Suspect]
     Indication: GLIOBLASTOMA
     Dosage: SEE IMAGE
     Route: 048
     Dates: start: 20021008, end: 20021012
  5. TEMODAR [Suspect]
     Indication: GLIOBLASTOMA
     Dosage: SEE IMAGE
     Route: 048
     Dates: start: 20021105, end: 20021109
  6. TEMODAR [Suspect]
     Indication: GLIOBLASTOMA
     Dosage: SEE IMAGE
     Route: 048
     Dates: start: 20021209, end: 20021213
  7. TEMODAR [Suspect]
     Indication: GLIOBLASTOMA
     Dosage: SEE IMAGE
     Route: 048
     Dates: start: 20030107, end: 20030111
  8. TEMODAR [Suspect]
     Indication: GLIOBLASTOMA
     Dosage: SEE IMAGE
     Route: 048
     Dates: start: 20030204, end: 20030208
  9. TEMODAR [Suspect]
     Indication: GLIOBLASTOMA
     Dosage: SEE IMAGE
     Route: 048
     Dates: start: 20030318, end: 20030322
  10. TEMODAR [Suspect]
     Indication: GLIOBLASTOMA
     Dosage: SEE IMAGE
     Route: 048
     Dates: start: 20030415, end: 20030419
  11. TEMODAR [Suspect]
     Indication: GLIOBLASTOMA
     Dosage: SEE IMAGE
     Route: 048
     Dates: start: 20030513, end: 20030517
  12. TEMODAR [Suspect]
     Indication: GLIOBLASTOMA
     Dosage: SEE IMAGE
     Route: 048
     Dates: start: 20030611, end: 20030615
  13. TEMODAR [Suspect]
     Indication: GLIOBLASTOMA
     Dosage: SEE IMAGE
     Route: 048
     Dates: start: 20030708, end: 20030712
  14. TEMODAR [Suspect]
     Indication: GLIOBLASTOMA
     Dosage: SEE IMAGE
     Route: 048
     Dates: start: 20030813, end: 20030817
  15. TEMODAR [Suspect]
     Indication: GLIOBLASTOMA
     Dosage: SEE IMAGE
     Route: 048
     Dates: start: 20030923, end: 20031111
  16. TEMODAR [Suspect]
     Indication: GLIOBLASTOMA
     Dosage: SEE IMAGE
     Route: 048
     Dates: start: 20031202, end: 20040112
  17. TEMODAR [Suspect]
     Indication: GLIOBLASTOMA
     Dosage: SEE IMAGE
     Route: 048
     Dates: start: 20040210, end: 20040309
  18. TEMODAR [Suspect]
     Indication: GLIOBLASTOMA
     Dosage: SEE IMAGE
     Route: 048
     Dates: start: 20020808, end: 20040323
  19. NEURONTIN [Suspect]
     Indication: CONVULSION PROPHYLAXIS
     Dosage: 1200 MG TID ORAL
     Route: 048
     Dates: start: 20040109, end: 20040401
  20. SEPTRA DS [Suspect]
     Indication: PROPHYLAXIS
     Dosage: ORAL
     Route: 048
     Dates: start: 20020801, end: 20040323
  21. LEVAQUIN [Suspect]
     Indication: UPPER RESPIRATORY TRACT INFECTION
     Dosage: X 7 DAYS ORAL
     Route: 048
  22. THALIDOMIDE [Suspect]
     Dosage: 1200 MG QD
     Dates: start: 20020701, end: 20040323
  23. HEPARIN [Suspect]
  24. FAMCICLOVIR [Concomitant]
  25. CODEINE [Concomitant]
  26. PHENOBARBITAL TAB [Concomitant]
  27. ASPIRIN [Concomitant]
  28. FRAGMIN [Concomitant]
  29. CFT-11 [Concomitant]
  30. BCNU-70 [Concomitant]
  31. TAXOL [Concomitant]
  32. TAMIFLU [Concomitant]
  33. CEFTRIAXONE [Concomitant]

REACTIONS (13)
  - APHAGIA [None]
  - APLASTIC ANAEMIA [None]
  - BACTERIAL INFECTION [None]
  - CATHETER RELATED INFECTION [None]
  - CONJUNCTIVAL HAEMORRHAGE [None]
  - EAR PAIN [None]
  - HEADACHE [None]
  - HERPETIC STOMATITIS [None]
  - MALAISE [None]
  - MYALGIA [None]
  - PETECHIAE [None]
  - PYREXIA [None]
  - SEPSIS [None]
